FAERS Safety Report 19803504 (Version 2)
Quarter: 2021Q4

REPORT INFORMATION
  Report Type: Spontaneous
  Country: IN (occurrence: IN)
  Receive Date: 20210908
  Receipt Date: 20211005
  Transmission Date: 20220303
  Serious: Yes (Other)
  Sender: FDA-Public Use
  Company Number: IN-AMGEN-INDSP2021135935

PATIENT

DRUGS (5)
  1. FILGRASTIM [Suspect]
     Active Substance: FILGRASTIM
     Indication: Prophylaxis
     Dosage: UNK
     Route: 065
  2. DOXORUBICIN [Concomitant]
     Active Substance: DOXORUBICIN
     Indication: Hodgkin^s disease
  3. BLEOMYCIN [Concomitant]
     Active Substance: BLEOMYCIN SULFATE
     Indication: Hodgkin^s disease
  4. VINBLASTINE [Concomitant]
     Active Substance: VINBLASTINE
     Indication: Hodgkin^s disease
  5. DACARBAZINE [Concomitant]
     Active Substance: DACARBAZINE
     Indication: Hodgkin^s disease

REACTIONS (4)
  - Pulmonary toxicity [Unknown]
  - Cardiotoxicity [Unknown]
  - Hypothyroidism [Unknown]
  - Ejection fraction decreased [Unknown]
